FAERS Safety Report 5845077-1 (Version None)
Quarter: 2008Q3

REPORT INFORMATION
  Report Type: 
  Country: None (occurrence: None)
  Receive Date: 20080814
  Receipt Date: 20080811
  Transmission Date: 20090109
  Serious: Yes (Other)
  Sender: FDA-Public Use
  Company Number: PT-ASTRAZENECA-2008AC02146

PATIENT
  Age: 40 Year
  Sex: Male

DRUGS (1)
  1. SYMBICORT [Suspect]
     Indication: COUGH
     Dosage: PHARMACIST DISPENSED 80/4.5 UG INSTEAD OF 160/4.5 UG IN ERROR
     Route: 055

REACTIONS (4)
  - DRUG DISPENSING ERROR [None]
  - EYE SWELLING [None]
  - LIP SWELLING [None]
  - SWELLING FACE [None]
